FAERS Safety Report 5255613-4 (Version None)
Quarter: 2007Q1

REPORT INFORMATION
  Report Type: 
  Country: None (occurrence: None)
  Receive Date: 20061201
  Receipt Date: 20060915
  Transmission Date: 20070707
  Serious: No
  Sender: FDA-Public Use
  Company Number: 2006MP001044

PATIENT

DRUGS (1)
  1. DACOGEN [Suspect]
     Dosage: IV
     Route: 042
     Dates: start: 20060101

REACTIONS (1)
  - ATRIAL FIBRILLATION [None]
